FAERS Safety Report 7324559-X (Version None)
Quarter: 2011Q1

REPORT INFORMATION
  Report Type: 
  Country: None (occurrence: None)
  Receive Date: 20110301
  Receipt Date: 20110224
  Transmission Date: 20110831
  Serious: Yes (Death, Life-Threatening, Hospitalization)
  Sender: FDA-Public Use
  Company Number: PHHO2010AU15115

PATIENT
  Sex: Female

DRUGS (16)
  1. AZACITIDINE [Suspect]
     Indication: ACUTE MYELOID LEUKAEMIA
     Dosage: 128 MG, UNK
     Dates: start: 20100621
  2. AZITHROMYCIN [Suspect]
  3. IDARUBICIN [Suspect]
  4. ATGAM [Concomitant]
  5. METHOTREXATE [Concomitant]
  6. AZACITIDINE [Suspect]
     Dosage: 128 MG, UNK
     Dates: start: 20100816, end: 20100824
  7. CYCLOPHOSPHAMIDE [Suspect]
  8. CICLOSPORIN [Concomitant]
  9. EVEROLIMUS [Suspect]
     Indication: ACUTE MYELOID LEUKAEMIA
     Dosage: 5 MG, DAILY
     Route: 048
     Dates: start: 20100625
  10. EVEROLIMUS [Suspect]
     Dosage: 2.5 MG, UNK
     Route: 048
  11. VITAMIN K TAB [Concomitant]
  12. IRRADIATION [Concomitant]
  13. EVEROLIMUS [Suspect]
     Dosage: 5 MG, DAILY
     Route: 048
     Dates: start: 20100820, end: 20100906
  14. AZACITIDINE [Suspect]
     Dosage: UNK
  15. PALIFERMIN [Concomitant]
  16. ADRIAMYCIN [Suspect]

REACTIONS (43)
  - LIVER INJURY [None]
  - ABDOMINAL PAIN [None]
  - ENDOTRACHEAL INTUBATION [None]
  - ZYGOMYCOSIS [None]
  - LEFT VENTRICULAR END-DIASTOLIC PRESSURE INCREASED [None]
  - VENTRICULAR HYPOKINESIA [None]
  - WEIGHT INCREASED [None]
  - VIRAL INFECTION [None]
  - COAGULOPATHY [None]
  - DYSPNOEA [None]
  - RENAL FAILURE ACUTE [None]
  - LEFT VENTRICULAR FAILURE [None]
  - SEPSIS [None]
  - THROMBOSIS [None]
  - DILATATION ATRIAL [None]
  - LIVER FUNCTION TEST ABNORMAL [None]
  - BRONCHIOLITIS [None]
  - LIVER ABSCESS [None]
  - ATRIAL FIBRILLATION [None]
  - MITRAL VALVE INCOMPETENCE [None]
  - FLUID OVERLOAD [None]
  - DILATATION VENTRICULAR [None]
  - MULTI-ORGAN FAILURE [None]
  - BRONCHOPNEUMONIA [None]
  - NEUTROPENIA [None]
  - MYCOPLASMA TEST POSITIVE [None]
  - TRACHEOSTOMY [None]
  - NECROTISING GASTRITIS [None]
  - PLEURAL EFFUSION [None]
  - EJECTION FRACTION DECREASED [None]
  - PYREXIA [None]
  - DELIRIUM [None]
  - DEPRESSED LEVEL OF CONSCIOUSNESS [None]
  - MYOCARDITIS BACTERIAL [None]
  - CARDIAC FAILURE [None]
  - ANAPHYLACTIC REACTION [None]
  - CARDIAC ARREST [None]
  - ALVEOLITIS [None]
  - HYPOTENSION [None]
  - ORTHOPNOEA [None]
  - OEDEMA [None]
  - LEFT VENTRICULAR DYSFUNCTION [None]
  - RESPIRATORY DISTRESS [None]
